FAERS Safety Report 8811520 (Version 1)
Quarter: 2012Q4

REPORT INFORMATION
  Report Type: Spontaneous
  Country: US (occurrence: None)
  Receive Date: 20120925
  Receipt Date: 20120925
  Transmission Date: 20130627
  Serious: Yes (Hospitalization)
  Sender: FDA-Public Use
  Company Number: None

PATIENT
  Age: 64 Year
  Sex: Male
  Weight: 111.4 kg

DRUGS (1)
  1. AMIODARONE [Suspect]
     Route: 048
     Dates: start: 20120628, end: 20120716

REACTIONS (10)
  - Toxicity to various agents [None]
  - Diarrhoea [None]
  - Nausea [None]
  - Vomiting [None]
  - Tremor [None]
  - Abdominal pain [None]
  - Dehydration [None]
  - Aphagia [None]
  - Electrolyte imbalance [None]
  - Electrocardiogram change [None]
